FAERS Safety Report 11888877 (Version 2)
Quarter: 2016Q1

REPORT INFORMATION
  Report Type: Spontaneous
  Country: US (occurrence: US)
  Receive Date: 20160105
  Receipt Date: 20160203
  Transmission Date: 20160526
  Serious: No
  Sender: FDA-Public Use
  Company Number: US-ASTRAZENECA-2015SF27507

PATIENT
  Age: 30773 Day
  Sex: Female
  Weight: 79.4 kg

DRUGS (4)
  1. SYMBICORT [Suspect]
     Active Substance: BUDESONIDE\FORMOTEROL FUMARATE DIHYDRATE
     Indication: BRONCHITIS CHRONIC
     Dosage: 160MCG/4.5MCG, SHE TOOK 1 INHALATION FOR HER DOSE, AND SOMETIMES TOOK,TWO TIMES A DAY
     Route: 055
     Dates: start: 2010
  2. SINGULAIR [Concomitant]
     Active Substance: MONTELUKAST SODIUM
     Indication: BRONCHITIS CHRONIC
     Dosage: DAILY
     Route: 048
  3. SYMBICORT [Suspect]
     Active Substance: BUDESONIDE\FORMOTEROL FUMARATE DIHYDRATE
     Indication: CHRONIC OBSTRUCTIVE PULMONARY DISEASE
     Dosage: 160MCG/4.5MCG, SHE TOOK 1 INHALATION FOR HER DOSE, AND SOMETIMES TOOK,TWO TIMES A DAY
     Route: 055
     Dates: start: 2010
  4. SYMBICORT [Suspect]
     Active Substance: BUDESONIDE\FORMOTEROL FUMARATE DIHYDRATE
     Indication: ASTHMA
     Dosage: 160MCG/4.5MCG, SHE TOOK 1 INHALATION FOR HER DOSE, AND SOMETIMES TOOK,TWO TIMES A DAY
     Route: 055
     Dates: start: 2010

REACTIONS (7)
  - Device malfunction [Unknown]
  - Dizziness [Unknown]
  - Cough [Unknown]
  - Drug dose omission [Unknown]
  - Circumstance or information capable of leading to medication error [Unknown]
  - Rhinorrhoea [Unknown]
  - Intentional product misuse [Unknown]

NARRATIVE: CASE EVENT DATE: 201510
